FAERS Safety Report 18642506 (Version 1)
Quarter: 2020Q4

REPORT INFORMATION
  Report Type: Spontaneous
  Country: US (occurrence: US)
  Receive Date: 20201221
  Receipt Date: 20201221
  Transmission Date: 20210114
  Serious: Yes (Other)
  Sender: FDA-Public Use
  Company Number: US-DRREDDYS-USA/USA/20/0130200

PATIENT
  Age: 18 Year
  Sex: Female

DRUGS (1)
  1. ZENATANE [Suspect]
     Active Substance: ISOTRETINOIN
     Indication: PRODUCT USED FOR UNKNOWN INDICATION
     Dosage: RMA ISSUE DATE: 11/14/2020 3:09:27 PM, 7/22/2020 3:37:31 PM,9/3/2020 5:55:20 PM,10/6/2020 5:56:47 PM
     Route: 048

REACTIONS (2)
  - Depression [Unknown]
  - Anxiety [Unknown]
